FAERS Safety Report 24914057 (Version 2)
Quarter: 2025Q1

REPORT INFORMATION
  Report Type: Spontaneous
  Country: CN (occurrence: CN)
  Receive Date: 20250202
  Receipt Date: 20250207
  Transmission Date: 20250408
  Serious: Yes (Hospitalization)
  Sender: NOVARTIS
  Company Number: CN-002147023-NVSC2025CN013330

PATIENT
  Age: 66 Year
  Sex: Female
  Weight: 52 kg

DRUGS (1)
  1. DIOVAN [Suspect]
     Active Substance: VALSARTAN
     Indication: Blood pressure decreased
     Dosage: 80 MG, QD
     Route: 048
     Dates: start: 20240218, end: 20240518

REACTIONS (10)
  - Gastritis haemorrhagic [Recovering/Resolving]
  - Gastritis erosive [Recovering/Resolving]
  - Melaena [Recovering/Resolving]
  - Abdominal discomfort [Recovering/Resolving]
  - Hiccups [Recovering/Resolving]
  - Decreased appetite [Recovering/Resolving]
  - Nausea [Recovering/Resolving]
  - Vomiting [Recovering/Resolving]
  - Blood pressure increased [Recovering/Resolving]
  - Faeces discoloured [Recovering/Resolving]

NARRATIVE: CASE EVENT DATE: 20240520
